FAERS Safety Report 4435202-1 (Version None)
Quarter: 2004Q3

REPORT INFORMATION
  Report Type: 
  Country: None (occurrence: None)
  Receive Date: 20040827
  Receipt Date: 20040825
  Transmission Date: 20050211
  Serious: Yes (Other)
  Sender: FDA-Public Use
  Company Number: BW-BRISTOL-MYERS SQUIBB COMPANY-12683736

PATIENT
  Age: 35 Year
  Sex: Female

DRUGS (3)
  1. EFAVIRENZ [Suspect]
     Indication: HIV INFECTION
     Dates: start: 20030922
  2. DIDANOSINE [Suspect]
     Indication: HIV INFECTION
     Dates: start: 20030922
  3. ZIDOVUDINE [Suspect]
     Indication: HIV INFECTION
     Dates: start: 20030922

REACTIONS (1)
  - ANAEMIA [None]
